FAERS Safety Report 9404654 (Version 2)
Quarter: 2013Q3

REPORT INFORMATION
  Report Type: Spontaneous
  Country: NO (occurrence: NO)
  Receive Date: 20130717
  Receipt Date: 20130920
  Transmission Date: 20140515
  Serious: Yes (Other)
  Sender: FDA-Public Use
  Company Number: PHHY2013NO074140

PATIENT
  Age: 67 Year
  Sex: Male

DRUGS (3)
  1. ZOMETA [Suspect]
     Indication: METASTASES TO BONE
     Dosage: UNK
     Route: 040
     Dates: start: 2010, end: 2012
  2. ELIGARD [Concomitant]
     Dosage: UNK UKN, UNK
     Route: 040
  3. BICALUTAMIDE [Concomitant]
     Dosage: 50 MG, QD

REACTIONS (3)
  - Osteonecrosis of jaw [Recovering/Resolving]
  - Exposed bone in jaw [Recovering/Resolving]
  - Purulent discharge [Recovering/Resolving]
